FAERS Safety Report 15594470 (Version 1)
Quarter: 2018Q4

REPORT INFORMATION
  Report Type: Spontaneous
  Country: US (occurrence: US)
  Receive Date: 20181106
  Receipt Date: 20181106
  Transmission Date: 20190205
  Serious: No
  Sender: FDA-Public Use
  Company Number: US-BAUSCH-BL-2018-014745

PATIENT
  Age: 76 Year
  Sex: Female

DRUGS (1)
  1. NIFEDIPINE. [Suspect]
     Active Substance: NIFEDIPINE
     Indication: HYPERTENSION
     Dosage: OCEANSIDE NIFEDIPINE, IMPRINT OF ^B^ ON ONE SIDE AND ^30^ ON THE OTHER SIDE.
     Route: 048
     Dates: start: 20180418, end: 2018

REACTIONS (1)
  - Joint swelling [Recovered/Resolved]

NARRATIVE: CASE EVENT DATE: 2018
